FAERS Safety Report 12583194 (Version 2)
Quarter: 2016Q3

REPORT INFORMATION
  Report Type: Spontaneous
  Country: US (occurrence: US)
  Receive Date: 20160722
  Receipt Date: 20160728
  Transmission Date: 20161109
  Serious: Yes (Other)
  Sender: FDA-Public Use
  Company Number: US-GLAXOSMITHKLINE-US2016GSK105182

PATIENT
  Sex: Male

DRUGS (1)
  1. ROPINIROLE. [Suspect]
     Active Substance: ROPINIROLE
     Indication: RESTLESS LEGS SYNDROME
     Dosage: UNK
     Route: 048
     Dates: start: 2014

REACTIONS (18)
  - Ill-defined disorder [Unknown]
  - Anger [Recovered/Resolved]
  - Oesophageal disorder [Recovered/Resolved]
  - Adverse drug reaction [Recovered/Resolved]
  - Loss of consciousness [Recovered/Resolved]
  - Irritability [Recovered/Resolved]
  - Depression [Recovered/Resolved]
  - Suicidal ideation [Recovered/Resolved]
  - Agitation [Recovered/Resolved]
  - Gastrooesophageal reflux disease [Recovered/Resolved]
  - Road traffic accident [Unknown]
  - Depression suicidal [Recovered/Resolved]
  - Mental impairment [Recovered/Resolved]
  - Dysuria [Recovered/Resolved]
  - Feeling abnormal [Recovered/Resolved]
  - Rapid eye movements sleep abnormal [Recovered/Resolved]
  - Insomnia [Recovering/Resolving]
  - Blood pressure increased [Recovered/Resolved]
